FAERS Safety Report 8329102-4 (Version None)
Quarter: 2012Q2

REPORT INFORMATION
  Report Type: 
  Country: None (occurrence: None)
  Receive Date: 20120502
  Receipt Date: 20120425
  Transmission Date: 20120825
  Serious: Yes (Other)
  Sender: FDA-Public Use
  Company Number: JP-PFIZER INC-2012101789

PATIENT
  Age: 70 Year
  Sex: Female

DRUGS (7)
  1. MEROPENEM [Suspect]
     Indication: SPONDYLITIS
     Route: 065
  2. RIFAMPICIN [Suspect]
     Indication: SPONDYLITIS
     Route: 065
  3. VANCOMYCIN [Suspect]
     Indication: SPONDYLITIS
     Route: 065
  4. CLINDAMYCIN HCL [Suspect]
     Indication: SPONDYLITIS
     Route: 065
  5. METHOTREXATE SODIUM [Suspect]
     Indication: RHEUMATOID ARTHRITIS
     Route: 065
  6. CEFAZOLIN [Suspect]
     Route: 065
  7. LINEZOLID [Suspect]
     Indication: SPONDYLITIS
     Route: 065

REACTIONS (3)
  - DRUG INEFFECTIVE [None]
  - SEPTIC SHOCK [None]
  - HYPONATRAEMIA [None]
